FAERS Safety Report 15479031 (Version 2)
Quarter: 2018Q4

REPORT INFORMATION
  Report Type: Spontaneous
  Country: ES (occurrence: ES)
  Receive Date: 20181009
  Receipt Date: 20181016
  Transmission Date: 20190205
  Serious: Yes (Death, Life-Threatening)
  Sender: FDA-Public Use
  Company Number: ES-PFIZER INC-2018403448

PATIENT
  Age: 73 Year
  Sex: Male

DRUGS (3)
  1. METHYLPREDNISOLONE SODIUM SUCCINATE. [Suspect]
     Active Substance: METHYLPREDNISOLONE SODIUM SUCCINATE
     Indication: PULMONARY RENAL SYNDROME
     Dosage: 1 G, DAILY (DILUTED IN 100 ML OF 5% DEXTROSE IN ONLY 20 MINUTES)
     Route: 040
     Dates: start: 199602
  2. METHYLPREDNISOLONE SODIUM SUCCINATE. [Suspect]
     Active Substance: METHYLPREDNISOLONE SODIUM SUCCINATE
     Dosage: 1 G, DAILY (ADMINISTERED OVER MORE THAN AN HOUR)
     Route: 040
     Dates: start: 199602
  3. METHYLPREDNISOLONE SODIUM SUCCINATE. [Suspect]
     Active Substance: METHYLPREDNISOLONE SODIUM SUCCINATE
     Indication: PULMONARY HAEMORRHAGE
     Dosage: 1 G, DAILY (ADMINISTERED OVER MORE THAN AN HOUR)
     Route: 040
     Dates: start: 199602

REACTIONS (4)
  - Incorrect product administration duration [Unknown]
  - Cardiac arrest [Recovered/Resolved]
  - Bradycardia [Recovered/Resolved]
  - Circulatory collapse [Recovered/Resolved]

NARRATIVE: CASE EVENT DATE: 199602
